FAERS Safety Report 23606732 (Version 1)
Quarter: 2024Q1

REPORT INFORMATION
  Report Type: Spontaneous
  Country: FR (occurrence: FR)
  Receive Date: 20240307
  Receipt Date: 20240307
  Transmission Date: 20240410
  Serious: Yes (Hospitalization)
  Sender: FDA-Public Use
  Company Number: None

PATIENT
  Age: 4 Year
  Sex: Female
  Weight: 15.3 kg

DRUGS (3)
  1. VINCRISTINE [Suspect]
     Active Substance: VINCRISTINE
     Indication: Chemotherapy
     Dosage: TIME INTERVAL: CYCLICAL: 0.99MG ON D1 AND D8, VINCRISTINE (SULFATE)
     Route: 042
     Dates: start: 20231106
  2. BEVACIZUMAB [Suspect]
     Active Substance: BEVACIZUMAB
     Indication: Chemotherapy
     Dosage: TIME INTERVAL: CYCLICAL: D1, ((MAMMAL/HAMSTER/CHO CELLS)), BEVACIZUMAB ((MAMMIFERE/HAMSTER/CELLUL...
     Route: 042
     Dates: start: 20231106
  3. IRINOTECAN [Suspect]
     Active Substance: IRINOTECAN
     Indication: Chemotherapy
     Dosage: TIME INTERVAL: CYCLICAL: 16MG FROM D1 TO D5
     Route: 042
     Dates: start: 20231106

REACTIONS (1)
  - Renal-limited thrombotic microangiopathy [Not Recovered/Not Resolved]

NARRATIVE: CASE EVENT DATE: 20231228
